FAERS Safety Report 24292658 (Version 1)
Quarter: 2024Q3

REPORT INFORMATION
  Report Type: Spontaneous
  Country: US (occurrence: None)
  Receive Date: 20240905
  Receipt Date: 20240905
  Transmission Date: 20241016
  Serious: Yes (Other)
  Sender: Public
  Company Number: None

PATIENT
  Age: 67 Year
  Sex: Female
  Weight: 123.75 kg

DRUGS (20)
  1. METFORMIN [Suspect]
     Active Substance: METFORMIN HYDROCHLORIDE
     Indication: Glucose tolerance impaired
     Dosage: OTHER QUANTITY : 100 TABLET(S);?FREQUENCY : DAILY;?
     Route: 048
  2. PREDNISONE [Suspect]
     Active Substance: PREDNISONE
  3. DEVICE [Concomitant]
     Active Substance: DEVICE
  4. METHYLCOBALAMIN [Concomitant]
     Active Substance: METHYLCOBALAMIN
  5. LEVOTHYROXINE [Concomitant]
     Active Substance: LEVOTHYROXINE\LEVOTHYROXINE SODIUM
  6. armor thyrod [Concomitant]
  7. PRAVASTATIN [Concomitant]
     Active Substance: PRAVASTATIN
  8. GABAPENTIN [Concomitant]
     Active Substance: GABAPENTIN
  9. HERBALS\TURMERIC [Concomitant]
     Active Substance: HERBALS\TURMERIC
  10. ASPIRIN [Concomitant]
     Active Substance: ASPIRIN
  11. IRON [Concomitant]
     Active Substance: IRON
  12. c [Concomitant]
  13. VITAMIN B COMPLEX [Concomitant]
     Active Substance: CYANOCOBALAMIN\DEXPANTHENOL\NIACINAMIDE\PYRIDOXINE HYDROCHLORIDE\RIBOFLAVIN 5^-PHOSPHATE SODIUM\THIA
  14. HERBALS\VITIS VINIFERA SEED [Concomitant]
     Active Substance: HERBALS\VITIS VINIFERA SEED
  15. alerclear [Concomitant]
  16. CALCIUM [Concomitant]
     Active Substance: CALCIUM
  17. MAGNESIUM [Concomitant]
     Active Substance: MAGNESIUM
  18. SELENIUM [Concomitant]
     Active Substance: SELENIUM
  19. VITAMINS [Concomitant]
     Active Substance: VITAMINS
  20. MELATONIN [Concomitant]
     Active Substance: MELATONIN

REACTIONS (10)
  - Somnolence [None]
  - Corneal disorder [None]
  - Exercise tolerance decreased [None]
  - Pain [None]
  - Myalgia [None]
  - Varicose vein [None]
  - Muscle spasms [None]
  - Influenza like illness [None]
  - Visual acuity reduced [None]
  - Adverse drug reaction [None]

NARRATIVE: CASE EVENT DATE: 20240515
